FAERS Safety Report 8382373-0 (Version None)
Quarter: 2012Q2

REPORT INFORMATION
  Report Type: 
  Country: None (occurrence: None)
  Receive Date: 20120522
  Receipt Date: 20111028
  Transmission Date: 20120825
  Serious: Yes (Hospitalization)
  Sender: FDA-Public Use
  Company Number: 2011-10476

PATIENT

DRUGS (1)
  1. THERACYS [Suspect]
     Indication: PRODUCT USED FOR UNKNOWN INDICATION
     Dosage: I.VES., BLADDER
     Route: 043

REACTIONS (1)
  - CEREBROVASCULAR ACCIDENT [None]
